FAERS Safety Report 19074183 (Version 1)
Quarter: 2021Q1

REPORT INFORMATION
  Report Type: Spontaneous
  Country: GB (occurrence: GB)
  Receive Date: 20210330
  Receipt Date: 20210330
  Transmission Date: 20210420
  Serious: Yes (Other)
  Sender: FDA-Public Use
  Company Number: GB-TEVA-2021-GB-1894659

PATIENT
  Age: 76 Year
  Sex: Female
  Weight: 79 kg

DRUGS (3)
  1. DOXYCYCLINE. [Suspect]
     Active Substance: DOXYCYCLINE
     Indication: LOWER RESPIRATORY TRACT INFECTION
     Dosage: 100 MG FOR STRUCTURE OF ROTATOR CUFF INCLUDING MUSCLES AND TENDONS
     Route: 048
     Dates: start: 20210212, end: 20210212
  2. FENBID [Concomitant]
     Active Substance: IBUPROFEN
     Dosage: 3 DOSAGE FORMS DAILY; APPLY TO THE AFFECTED AREA(S)
     Dates: start: 20210211
  3. CROTAMITON [Concomitant]
     Active Substance: CROTAMITON
     Dates: start: 20210211

REACTIONS (4)
  - Loss of consciousness [Recovered/Resolved]
  - Vomiting [Unknown]
  - Malaise [Unknown]
  - Productive cough [Unknown]

NARRATIVE: CASE EVENT DATE: 20210212
